FAERS Safety Report 5599992-7 (Version None)
Quarter: 2007Q4

REPORT INFORMATION
  Report Type: 
  Country: None (occurrence: None)
  Receive Date: 20071226
  Receipt Date: 20070630
  Transmission Date: 20080405
  Serious: Yes (Hospitalization)
  Sender: FDA-Public Use
  Company Number: 243896

PATIENT
  Age: 60 Year
  Sex: Female
  Weight: 117.9 kg

DRUGS (15)
  1. RAPTIVA [Suspect]
     Indication: PSORIASIS
     Dosage: 1.25MG, 1/WEEK, SUBCUTANEOUS
     Route: 058
     Dates: start: 20070415
  2. ADVAIR DISKUS 100/50 [Concomitant]
  3. SPIRIVA [Concomitant]
  4. ALBUTEROL (ALBUTEROL/ALBUTEROL SULFATE) [Concomitant]
  5. NIASPAN [Concomitant]
  6. CRESTOR [Concomitant]
  7. CITALOPRAM HYDROBROMIDE [Concomitant]
  8. METFORMIN HCL [Concomitant]
  9. PROZAC [Concomitant]
  10. DIOVAN [Concomitant]
  11. GLIPIZIDE [Concomitant]
  12. DARVOCET (ACETAMINOPHEN, PROPOXYPHENE NAPSYLATE) [Concomitant]
  13. GABAPENTIN [Concomitant]
  14. ASPIRIN [Concomitant]
  15. CLOBETASOL (CLOBETASOL PROPIONATE) [Concomitant]

REACTIONS (2)
  - BURNING SENSATION [None]
  - CELLULITIS [None]
